FAERS Safety Report 5249534-0 (Version None)
Quarter: 2007Q1

REPORT INFORMATION
  Report Type: 
  Country: None (occurrence: None)
  Receive Date: 20070228
  Receipt Date: 20060322
  Transmission Date: 20070707
  Serious: No
  Sender: FDA-Public Use
  Company Number: US-GLAXOSMITHKLINE-A0591299A

PATIENT
  Sex: Female

DRUGS (5)
  1. IMITREX [Suspect]
     Indication: MIGRAINE
     Dosage: 1INJ AS REQUIRED
  2. PROMETHAZINE [Concomitant]
  3. AMBIEN [Concomitant]
  4. PROZAC [Concomitant]
  5. WELLBUTRIN [Concomitant]

REACTIONS (2)
  - CONTUSION [None]
  - PHARMACEUTICAL PRODUCT COMPLAINT [None]
